FAERS Safety Report 6842251-2 (Version None)
Quarter: 2010Q3

REPORT INFORMATION
  Report Type: 
  Country: None (occurrence: None)
  Receive Date: 20100714
  Receipt Date: 20070725
  Transmission Date: 20110219
  Serious: No
  Sender: FDA-Public Use
  Company Number: US-PFIZER INC-2007062651

PATIENT
  Sex: Female
  Weight: 90.3 kg

DRUGS (8)
  1. CHANTIX [Suspect]
     Indication: SMOKING CESSATION THERAPY
     Dates: start: 20070711
  2. PENICILLIN NOS [Suspect]
  3. NEXIUM [Concomitant]
  4. PLAVIX [Concomitant]
  5. MOBIC [Concomitant]
  6. LOPERAMIDE HYDROCHLORIDE [Concomitant]
  7. ANTIHISTAMINES [Concomitant]
  8. ASPIRIN [Concomitant]

REACTIONS (2)
  - DRUG HYPERSENSITIVITY [None]
  - DRUG INEFFECTIVE [None]
